FAERS Safety Report 4930384-7 (Version None)
Quarter: 2006Q1

REPORT INFORMATION
  Report Type: 
  Country: None (occurrence: None)
  Receive Date: 20060302
  Receipt Date: 20051130
  Transmission Date: 20060701
  Serious: Yes (Disabling)
  Sender: FDA-Public Use
  Company Number: DE-GLAXOSMITHKLINE-D0048137A

PATIENT
  Age: 33 Year
  Sex: Male
  Weight: 94 kg

DRUGS (4)
  1. IMIGRAN NASAL SPRAY [Suspect]
     Indication: MIGRAINE
     Dosage: 20MG AS REQUIRED
     Route: 045
     Dates: start: 20010111, end: 20051125
  2. METOHEXAL [Concomitant]
     Indication: MIGRAINE
     Dosage: 50U IN THE MORNING
     Route: 065
     Dates: start: 20010101, end: 20060101
  3. ALMOGRAN [Concomitant]
     Indication: MIGRAINE
     Dosage: 12.5U AS REQUIRED
     Route: 065
     Dates: start: 20050401, end: 20060101
  4. AZUR [Concomitant]
     Indication: MIGRAINE
     Route: 065
     Dates: end: 20050101

REACTIONS (3)
  - GAMMA-GLUTAMYLTRANSFERASE INCREASED [None]
  - HEPATIC ENZYME INCREASED [None]
  - LIVER DISORDER [None]
